FAERS Safety Report 7428047-1 (Version None)
Quarter: 2011Q2

REPORT INFORMATION
  Report Type: 
  Country: None (occurrence: None)
  Receive Date: 20110421
  Receipt Date: 20110414
  Transmission Date: 20111010
  Serious: Yes (Hospitalization)
  Sender: FDA-Public Use
  Company Number: US-BIOGENIDEC-2010BI013792

PATIENT
  Age: 60 Year
  Sex: Male
  Weight: 88 kg

DRUGS (8)
  1. LEXAPRO [Concomitant]
     Indication: DEPRESSION
  2. AVONEX [Suspect]
     Indication: MULTIPLE SCLEROSIS
     Route: 030
     Dates: start: 20100309, end: 20100607
  3. FLOMAX [Concomitant]
     Indication: BLADDER DISORDER
  4. CELEBREX [Concomitant]
     Indication: ARTHRITIS
  5. SIMSTATIN [Concomitant]
     Indication: BLOOD CHOLESTEROL INCREASED
  6. SINGULAIR [Concomitant]
     Indication: MULTIPLE ALLERGIES
  7. DIVALPROEX EXTENDED-RELEASE [Concomitant]
     Indication: DEPRESSION
  8. OMEPRAZOLE [Concomitant]
     Indication: DEPRESSION

REACTIONS (3)
  - CHEST PAIN [None]
  - BRONCHITIS [None]
  - BLOOD PRESSURE INCREASED [None]
